FAERS Safety Report 8802877 (Version 1)
Quarter: 2012Q4

REPORT INFORMATION
  Report Type: 
  Country: US (occurrence: US)
  Receive Date: 20120924
  Receipt Date: 20120924
  Transmission Date: 20130627
  Serious: No
  Sender: FDA-Public Use
  Company Number: US-B.I. PHARMACEUTICALS,INC./RIDGEFIELD-2012-BP-22616BP

PATIENT
  Sex: Female
  Weight: 73 kg

DRUGS (9)
  1. SPIRIVA [Suspect]
     Indication: CHRONIC OBSTRUCTIVE PULMONARY DISEASE
     Dosage: 18 mcg
     Route: 055
     Dates: start: 2001
  2. SYMBICORT [Concomitant]
     Indication: ASTHMA
     Route: 055
     Dates: start: 2001
  3. SPIRONOLACTONE [Concomitant]
     Indication: OEDEMA
     Dosage: 50 mg
     Route: 048
     Dates: start: 2001
  4. FISH OIL [Concomitant]
     Route: 048
  5. CALCIUM D [Concomitant]
     Indication: OSTEOPOROSIS
     Route: 048
  6. LEVOTHYROXINE [Concomitant]
     Indication: HYPOTHYROIDISM
     Dosage: 75 mcg
     Route: 048
     Dates: start: 1971
  7. RECLAST [Concomitant]
     Indication: OSTEOPOROSIS
     Route: 058
  8. CENTRUM SILVER [Concomitant]
     Route: 048
  9. LOSARTAN [Concomitant]
     Indication: HYPERTENSION
     Dosage: 25 mg
     Route: 048
     Dates: start: 2002

REACTIONS (3)
  - Fatigue [Not Recovered/Not Resolved]
  - Fatigue [Not Recovered/Not Resolved]
  - Lung disorder [Not Recovered/Not Resolved]
